FAERS Safety Report 5660425-3 (Version None)
Quarter: 2008Q1

REPORT INFORMATION
  Report Type: 
  Country: None (occurrence: None)
  Receive Date: 20080311
  Receipt Date: 20071015
  Transmission Date: 20080703
  Serious: No
  Sender: FDA-Public Use
  Company Number: US-BAYER-200713353BCC

PATIENT
  Sex: Female

DRUGS (6)
  1. ALEVE [Suspect]
     Indication: ARTHRALGIA
     Route: 048
  2. NORVASC [Concomitant]
  3. LEVOTHYROXINE SODIUM [Concomitant]
  4. TYLENOL (CAPLET) [Concomitant]
  5. PEPCID [Concomitant]
  6. MYLANTA [Concomitant]

REACTIONS (2)
  - DIZZINESS [None]
  - STOMACH DISCOMFORT [None]
